FAERS Safety Report 6418028-9 (Version None)
Quarter: 2009Q4

REPORT INFORMATION
  Report Type: 
  Country: None (occurrence: None)
  Receive Date: 20091028
  Receipt Date: 20091016
  Transmission Date: 20100525
  Serious: Yes (Death)
  Sender: FDA-Public Use
  Company Number: KR-PFIZER INC-2009284618

PATIENT
  Age: 27 Year

DRUGS (22)
  1. VORICONAZOLE [Suspect]
     Indication: ASPERGILLOSIS
     Dosage: 330 MG, 2X/DAY
     Route: 042
     Dates: start: 20050817, end: 20050817
  2. VORICONAZOLE [Suspect]
     Dosage: 220 MG, 2X/DAY
     Route: 042
     Dates: start: 20050818, end: 20050908
  3. VORICONAZOLE [Suspect]
     Dosage: 200 MG, 2X/DAY
     Route: 042
     Dates: start: 20050909, end: 20051028
  4. VORICONAZOLE [Suspect]
     Dosage: 300 MG, 2X/DAY
     Route: 042
     Dates: start: 20060201, end: 20060201
  5. VORICONAZOLE [Suspect]
     Dosage: 200 MG, 2X/DAY
     Route: 042
     Dates: start: 20060202, end: 20060302
  6. METHYLPREDNISOLONE [Concomitant]
     Indication: IMMUNOSUPPRESSANT DRUG THERAPY
     Dosage: 125 MG, 1X/DAY
     Route: 042
     Dates: start: 20050315, end: 20060302
  7. TAZOCIN [Concomitant]
     Indication: URINARY TRACT INFECTION
     Dosage: 4.5 G, 3X/DAY
     Route: 042
     Dates: start: 20050912, end: 20051007
  8. TAZOCIN [Concomitant]
     Indication: RENAL ABSCESS
  9. MEROPENEM [Concomitant]
     Indication: URINARY TRACT INFECTION
     Dosage: 1 G, 2X/DAY
     Route: 042
     Dates: start: 20050417, end: 20050819
  10. MEROPENEM [Concomitant]
     Indication: RENAL ABSCESS
  11. CYCLOSPORINE [Concomitant]
     Indication: IMMUNOSUPPRESSANT DRUG THERAPY
     Dosage: 500 MG, 1X/DAY
     Route: 041
     Dates: start: 20050130, end: 20050901
  12. PREDNISOLONE [Concomitant]
     Indication: IMMUNE SYSTEM DISORDER
     Dosage: 30 MG, 1X/DAY
     Route: 048
     Dates: start: 20050627, end: 20051005
  13. TRIMETHOPRIM [Concomitant]
     Indication: NEOPLASM PROGRESSION
     Dosage: 960 MG, 1X/DAY
     Route: 048
     Dates: start: 20050402, end: 20060126
  14. ACYCLOVIR [Concomitant]
     Indication: PROPHYLAXIS
     Dosage: 500 MG, 3X/DAY
     Route: 042
     Dates: start: 20050126, end: 20060206
  15. ACYCLOVIR [Concomitant]
     Indication: NEOPLASM PROGRESSION
  16. CIPROFLOXACIN [Concomitant]
     Indication: URINARY TRACT INFECTION
     Dosage: 400 MG, 2X/DAY
     Route: 048
     Dates: start: 20060131, end: 20060202
  17. IMIPENEM [Concomitant]
     Indication: ABSCESS
     Dosage: 500 MG, 4X/DAY
     Route: 042
     Dates: start: 20060206, end: 20060223
  18. CEFAZOLIN [Concomitant]
     Indication: ABSCESS
     Dosage: 2 G, 3X/DAY
     Route: 042
     Dates: start: 20060128, end: 20060203
  19. CEFTAZIDIME [Concomitant]
     Indication: ABSCESS
     Dosage: 2 G, 3X/DAY
     Route: 042
     Dates: start: 20060203, end: 20060206
  20. VALPROATE SODIUM [Concomitant]
     Indication: CONVULSION
     Dosage: 400 MG, 4X/DAY
     Route: 042
     Dates: start: 20060128, end: 20060302
  21. METRONIDAZOLE [Concomitant]
     Indication: CLOSTRIDIAL INFECTION
     Dosage: 500 MG, 3X/DAY
     Route: 048
     Dates: start: 20060205, end: 20060208
  22. METRONIDAZOLE [Concomitant]
     Indication: PSEUDOMEMBRANOUS COLITIS
     Dosage: 500 MG, 3X/DAY
     Route: 048
     Dates: start: 20060129, end: 20060204

REACTIONS (1)
  - DEATH [None]
